APPROVED DRUG PRODUCT: RASUVO
Active Ingredient: METHOTREXATE
Strength: 22.5MG/0.45ML (22.5MG/0.45ML)
Dosage Form/Route: SOLUTION;SUBCUTANEOUS
Application: N205776 | Product #007
Applicant: MEDEXUS PHARMA INC
Approved: Jul 10, 2014 | RLD: Yes | RS: Yes | Type: RX

PATENTS:
Patent 8664231 | Expires: Jun 1, 2029